FAERS Safety Report 5034734-5 (Version None)
Quarter: 2006Q2

REPORT INFORMATION
  Report Type: 
  Country: None (occurrence: None)
  Receive Date: 20060621
  Receipt Date: 20060609
  Transmission Date: 20061013
  Serious: Yes (Other)
  Sender: FDA-Public Use
  Company Number: HQWYE192512JUN06

PATIENT

DRUGS (1)
  1. RAPAMUNE [Suspect]

REACTIONS (1)
  - VASCULITIS GASTROINTESTINAL [None]
